FAERS Safety Report 24110131 (Version 1)
Quarter: 2024Q3

REPORT INFORMATION
  Report Type: Spontaneous
  Country: GB (occurrence: GB)
  Receive Date: 20240718
  Receipt Date: 20240718
  Transmission Date: 20241016
  Serious: Yes (Hospitalization)
  Sender: EISAI
  Company Number: GB-Eisai-EC-2024-169977

PATIENT
  Sex: Female

DRUGS (1)
  1. ERIBULIN [Suspect]
     Active Substance: ERIBULIN
     Indication: Breast cancer metastatic
     Route: 042

REACTIONS (3)
  - Confusional state [Recovered/Resolved with Sequelae]
  - Neutropenic sepsis [Recovered/Resolved with Sequelae]
  - Dizziness [Recovered/Resolved with Sequelae]
